FAERS Safety Report 6643037-4 (Version None)
Quarter: 2010Q1

REPORT INFORMATION
  Report Type: 
  Country: None (occurrence: None)
  Receive Date: 20100319
  Receipt Date: 20100309
  Transmission Date: 20100710
  Serious: Yes (Hospitalization)
  Sender: FDA-Public Use
  Company Number: B0641050A

PATIENT
  Sex: Female

DRUGS (2)
  1. TALAVIR [Suspect]
     Indication: HERPES ZOSTER
     Dosage: 3G PER DAY
     Route: 048
     Dates: start: 20100218, end: 20100304
  2. GABAPENTIN [Concomitant]
     Indication: HERPES ZOSTER
     Dates: start: 20100218, end: 20100304

REACTIONS (2)
  - GASTRITIS [None]
  - PYREXIA [None]
